FAERS Safety Report 16383215 (Version 1)
Quarter: 2019Q2

REPORT INFORMATION
  Report Type: Spontaneous
  Country: US (occurrence: US)
  Receive Date: 20190516
  Receipt Date: 20190516
  Transmission Date: 20190711
  Serious: Yes (Hospitalization)
  Sender: FDA-Public Use
  Company Number: None

PATIENT
  Age: 30 Year
  Sex: Female

DRUGS (5)
  1. HYDROCORTISONE. [Concomitant]
     Active Substance: HYDROCORTISONE
  2. PREDNISONE. [Concomitant]
     Active Substance: PREDNISONE
  3. DYMISTA [Concomitant]
     Active Substance: AZELASTINE HYDROCHLORIDE\FLUTICASONE PROPIONATE
  4. PROMACTA [Suspect]
     Active Substance: ELTROMBOPAG OLAMINE
     Indication: THROMBOCYTOPENIA
     Route: 048
     Dates: start: 20180927
  5. DEXAMETHASON [Concomitant]
     Active Substance: DEXAMETHASONE

REACTIONS (2)
  - Platelet count decreased [None]
  - Therapy cessation [None]

NARRATIVE: CASE EVENT DATE: 20190510
